FAERS Safety Report 11599193 (Version 1)
Quarter: 2015Q4

REPORT INFORMATION
  Report Type: Spontaneous
  Country: US (occurrence: US)
  Receive Date: 20151006
  Receipt Date: 20151006
  Transmission Date: 20160304
  Serious: Yes (Other)
  Sender: FDA-Public Use
  Company Number: US-TEVA-598126USA

PATIENT
  Age: 35 Year
  Sex: Male
  Weight: 113.5 kg

DRUGS (16)
  1. QVAR [Suspect]
     Active Substance: BECLOMETHASONE DIPROPIONATE
     Indication: COUGH
     Dosage: ONE PUFF TWICE A DAY
     Route: 055
     Dates: start: 201508, end: 20150928
  2. VITAMIN D [Concomitant]
     Active Substance: CHOLECALCIFEROL
  3. FLUTICASONE [Concomitant]
     Active Substance: FLUTICASONE\FLUTICASONE PROPIONATE
  4. CETIRIZINE [Concomitant]
     Active Substance: CETIRIZINE HYDROCHLORIDE
     Indication: HYPERSENSITIVITY
  5. HYDROCODONE [Concomitant]
     Active Substance: HYDROCODONE
  6. CITALOPRAM [Concomitant]
     Active Substance: CITALOPRAM HYDROBROMIDE
  7. ASPIRIN. [Concomitant]
     Active Substance: ASPIRIN
  8. OMEPRAZOLE. [Concomitant]
     Active Substance: OMEPRAZOLE
  9. ALBUTEROL. [Concomitant]
     Active Substance: ALBUTEROL
  10. HYDROXYZINE [Concomitant]
     Active Substance: HYDROXYZINE\HYDROXYZINE HYDROCHLORIDE
  11. BENZONATATE. [Concomitant]
     Active Substance: BENZONATATE
  12. TYLENOL [Concomitant]
     Active Substance: ACETAMINOPHEN
  13. GABAPENTIN. [Concomitant]
     Active Substance: GABAPENTIN
  14. SYMBICORT [Concomitant]
     Active Substance: BUDESONIDE\FORMOTEROL FUMARATE DIHYDRATE
  15. CODEINE [Concomitant]
     Active Substance: CODEINE
     Dosage: COUGH SYRUP
  16. METHOCARBAMOL. [Concomitant]
     Active Substance: METHOCARBAMOL

REACTIONS (8)
  - Feeling abnormal [Recovered/Resolved]
  - Loss of consciousness [Recovered/Resolved]
  - Partial seizures [Unknown]
  - Monoplegia [Recovered/Resolved]
  - Hypoaesthesia [Not Recovered/Not Resolved]
  - Respiratory rate increased [Recovered/Resolved]
  - Chest pain [Recovered/Resolved]
  - Adverse event [Recovered/Resolved]

NARRATIVE: CASE EVENT DATE: 20150928
